FAERS Safety Report 9108352 (Version 1)
Quarter: 2013Q1

REPORT INFORMATION
  Report Type: Spontaneous
  Country: DE (occurrence: DE)
  Receive Date: 20130222
  Receipt Date: 20130222
  Transmission Date: 20140127
  Serious: Yes (Hospitalization, Other)
  Sender: FDA-Public Use
  Company Number: PHHY2012DE113076

PATIENT
  Sex: Male
  Weight: 80 kg

DRUGS (1)
  1. GILENYA [Suspect]
     Indication: MULTIPLE SCLEROSIS
     Dosage: 0.5 MG, DAILY
     Route: 048
     Dates: start: 20110329, end: 20121022

REACTIONS (8)
  - Bradycardia [Recovering/Resolving]
  - Dyspnoea [Recovering/Resolving]
  - Gastrointestinal inflammation [Recovered/Resolved]
  - Sciatica [Recovering/Resolving]
  - Skin infection [Unknown]
  - Sense of oppression [Unknown]
  - Chest discomfort [Unknown]
  - Vertigo [Recovering/Resolving]
